FAERS Safety Report 7179454-6 (Version None)
Quarter: 2010Q4

REPORT INFORMATION
  Report Type: 
  Country: None (occurrence: None)
  Receive Date: 20101221
  Receipt Date: 20101215
  Transmission Date: 20110411
  Serious: Yes (Death, Other)
  Sender: FDA-Public Use
  Company Number: NL-MEDIMMUNE-MEDI-0011998

PATIENT
  Sex: Male
  Weight: 2.345 kg

DRUGS (3)
  1. SYNAGIS [Suspect]
     Route: 030
     Dates: start: 20101022, end: 20101022
  2. SYNAGIS [Suspect]
     Route: 030
     Dates: start: 20101208, end: 20101208
  3. URSODEOXYCHOLIC ACID [Concomitant]
     Indication: LIVER DISORDER
     Dates: start: 20100101

REACTIONS (3)
  - GASTROINTESTINAL NECROSIS [None]
  - POISONING [None]
  - SURGERY [None]
